FAERS Safety Report 10221441 (Version 1)
Quarter: 2014Q2

REPORT INFORMATION
  Report Type: Spontaneous
  Country: US (occurrence: US)
  Receive Date: 20140606
  Receipt Date: 20140606
  Transmission Date: 20141212
  Serious: No
  Sender: FDA-Public Use
  Company Number: US-BAYER-2014-084529

PATIENT
  Age: 74 Year
  Sex: Female

DRUGS (1)
  1. ALEVE CAPLET [Suspect]
     Indication: ARTHRITIS
     Dosage: 1 DF, ONCE
     Route: 048
     Dates: start: 201405, end: 201405

REACTIONS (2)
  - Urticaria [Recovered/Resolved]
  - Rash erythematous [Recovered/Resolved]
